FAERS Safety Report 5370231-5 (Version None)
Quarter: 2007Q2

REPORT INFORMATION
  Report Type: 
  Country: None (occurrence: None)
  Receive Date: 20070626
  Receipt Date: 20070619
  Transmission Date: 20071010
  Serious: Yes (Death, Other)
  Sender: FDA-Public Use
  Company Number: DE-AMGEN-US202686

PATIENT
  Sex: Female
  Weight: 56 kg

DRUGS (6)
  1. ENBREL [Suspect]
     Indication: JUVENILE ARTHRITIS
     Dosage: 25 MG ONE TIME
     Route: 058
     Dates: start: 20061120, end: 20061120
  2. METHOTREXATE SODIUM [Suspect]
     Indication: RHEUMATOID ARTHRITIS
     Route: 058
     Dates: start: 20060401, end: 20061101
  3. DECORTIN-H [Concomitant]
  4. AMITRIPTYLINE HCL [Concomitant]
  5. ARAVA [Concomitant]
     Indication: JUVENILE ARTHRITIS
     Route: 048
     Dates: start: 20061004, end: 20061101
  6. RANTUDIL [Concomitant]

REACTIONS (7)
  - BLOOD LACTATE DEHYDROGENASE INCREASED [None]
  - BODY TEMPERATURE INCREASED [None]
  - CARDIAC DISORDER [None]
  - MALAISE [None]
  - METABOLIC DISORDER [None]
  - STOMATITIS [None]
  - UPPER RESPIRATORY TRACT INFECTION [None]
